FAERS Safety Report 13800833 (Version 8)
Quarter: 2018Q2

REPORT INFORMATION
  Report Type: Spontaneous
  Country: US (occurrence: US)
  Receive Date: 20170727
  Receipt Date: 20180416
  Transmission Date: 20180711
  Serious: Yes (Congenital Anomaly, Other)
  Sender: FDA-Public Use
  Company Number: PHEH2017US022887

PATIENT
  Sex: Male

DRUGS (5)
  1. ONDANSETRON AUROBINDO [Suspect]
     Active Substance: ONDANSETRON HYDROCHLORIDE
     Indication: FOETAL EXPOSURE DURING PREGNANCY
     Dosage: MOTHER DOSE: 8 MG Q6H, 4 MG Q6H
     Route: 064
  2. ONDANSETRONE RANBAXY [Suspect]
     Active Substance: ONDANSETRON HYDROCHLORIDE
     Indication: FOETAL EXPOSURE DURING PREGNANCY
     Dosage: MOTHER DOSE: 4 MG, TID
     Route: 064
  3. ONDANSETRON [Suspect]
     Active Substance: ONDANSETRON
     Indication: FOETAL EXPOSURE DURING PREGNANCY
     Dosage: MOTHER DOSE: 4 MG, TID
     Route: 064
  4. ZOFRAN ODT [Suspect]
     Active Substance: ONDANSETRON HYDROCHLORIDE
     Indication: FOETAL EXPOSURE DURING PREGNANCY
     Dosage: MOTHER DOSE: 4 MG, Q6H
     Route: 064
  5. ZOFRAN [Suspect]
     Active Substance: ONDANSETRON HYDROCHLORIDE
     Indication: FOETAL EXPOSURE DURING PREGNANCY
     Dosage: MOTHER DOSE: 4 MG PER 02 ML, Q6H
     Route: 064

REACTIONS (23)
  - Bicuspid aortic valve [Unknown]
  - Congenital aortic stenosis [Unknown]
  - Pain [Unknown]
  - Pain in extremity [Unknown]
  - Congenital aortic valve incompetence [Unknown]
  - Heart disease congenital [Unknown]
  - Faecaloma [Unknown]
  - Cardiac murmur [Unknown]
  - Cough [Unknown]
  - Dermatitis atopic [Unknown]
  - Dermatitis diaper [Unknown]
  - Head injury [Unknown]
  - Anal fissure [Unknown]
  - Emotional distress [Unknown]
  - Gastroenteritis [Unknown]
  - Injury [Unknown]
  - Urinary tract infection [Unknown]
  - Foetal exposure during pregnancy [Unknown]
  - Constipation [Unknown]
  - Oral candidiasis [Unknown]
  - Phimosis [Unknown]
  - Jaundice neonatal [Unknown]
  - Dyspnoea [Unknown]
